FAERS Safety Report 10662539 (Version 1)
Quarter: 2014Q4

REPORT INFORMATION
  Report Type: Spontaneous
  Country: US (occurrence: None)
  Receive Date: 20141217
  Receipt Date: 20141217
  Transmission Date: 20150529
  Serious: Yes (Life-Threatening, Other)
  Sender: FDA-Public Use
  Company Number: None

PATIENT
  Age: 62 Year
  Sex: Male
  Weight: 112.04 kg

DRUGS (5)
  1. ZYVOX [Suspect]
     Active Substance: LINEZOLID
     Indication: UVULITIS
     Dosage: 1 PILL
     Route: 048
     Dates: start: 20141111, end: 20141124
  2. ZYVOX [Suspect]
     Active Substance: LINEZOLID
     Indication: EAR INFECTION
     Dosage: 1 PILL
     Route: 048
     Dates: start: 20141111, end: 20141124
  3. ZYVOX [Suspect]
     Active Substance: LINEZOLID
     Indication: STAPHYLOCOCCAL INFECTION
     Dosage: 1 PILL
     Route: 048
     Dates: start: 20141111, end: 20141124
  4. ZYVOX [Suspect]
     Active Substance: LINEZOLID
     Indication: SINUSITIS
     Dosage: 1 PILL
     Route: 048
     Dates: start: 20141111, end: 20141124
  5. ZYVOX [Suspect]
     Active Substance: LINEZOLID
     Indication: DRUG RESISTANCE
     Dosage: 1 PILL
     Route: 048
     Dates: start: 20141111, end: 20141124

REACTIONS (3)
  - International normalised ratio increased [None]
  - Blood glucose decreased [None]
  - Drug interaction [None]

NARRATIVE: CASE EVENT DATE: 20141105
